FAERS Safety Report 6755586-9 (Version None)
Quarter: 2010Q2

REPORT INFORMATION
  Report Type: 
  Country: None (occurrence: None)
  Receive Date: 20100604
  Receipt Date: 20100524
  Transmission Date: 20101027
  Serious: Yes (Other)
  Sender: FDA-Public Use
  Company Number: PHHY2010US23946

PATIENT
  Sex: Female

DRUGS (9)
  1. RECLAST [Suspect]
     Indication: OSTEOPOROSIS
     Dosage: UNK
     Route: 042
     Dates: start: 20091228
  2. LEVOXYL [Concomitant]
  3. COREG [Concomitant]
  4. COZAAR [Concomitant]
  5. WARFARIN SODIUM [Concomitant]
  6. CITRACAL [Concomitant]
  7. VITAMIN D [Concomitant]
  8. MULTI-VITAMINS [Concomitant]
  9. COQ10 [Concomitant]

REACTIONS (6)
  - ASTHENIA [None]
  - DYSSTASIA [None]
  - MUSCLE DISORDER [None]
  - MUSCLE SPASMS [None]
  - MYALGIA [None]
  - PAIN [None]
